FAERS Safety Report 9104000 (Version 2)
Quarter: 2013Q2

REPORT INFORMATION
  Report Type: Spontaneous
  Country: US (occurrence: US)
  Receive Date: 20130219
  Receipt Date: 20130402
  Transmission Date: 20140414
  Serious: No
  Sender: FDA-Public Use
  Company Number: US-PFIZER INC-2013059463

PATIENT
  Sex: Female

DRUGS (1)
  1. VANCOMYCIN HCL [Suspect]
     Dosage: 250 MG, Q 6 HR
     Route: 042
     Dates: start: 20130129, end: 20130129

REACTIONS (6)
  - Product colour issue [Unknown]
  - Product reconstitution issue [Unknown]
  - Product solubility abnormal [Unknown]
  - Red man syndrome [Unknown]
  - Erythema [Recovered/Resolved]
  - Lip swelling [Recovered/Resolved]
